FAERS Safety Report 7320841-0 (Version None)
Quarter: 2011Q1

REPORT INFORMATION
  Report Type: 
  Country: None (occurrence: None)
  Receive Date: 20110228
  Receipt Date: 20110216
  Transmission Date: 20110831
  Serious: Yes (Other)
  Sender: FDA-Public Use
  Company Number: US-ROCHE-760679

PATIENT
  Sex: Male
  Weight: 77.1 kg

DRUGS (5)
  1. CLONAZEPAM [Suspect]
     Indication: ANXIETY
     Dosage: OTHER INDICATION: SLEEP AID
     Route: 048
  2. PROZAC [Concomitant]
  3. TYLENOL W/ CODEINE [Concomitant]
  4. KLONOPIN [Suspect]
     Indication: ANXIETY
     Dosage: OTHER INDICATION: SLEEP AID
     Route: 048
     Dates: start: 19830101
  5. COUMADIN [Concomitant]
     Indication: HEART VALVE REPLACEMENT

REACTIONS (2)
  - HEART VALVE REPLACEMENT [None]
  - DRUG SCREEN NEGATIVE [None]
